FAERS Safety Report 14790552 (Version 1)
Quarter: 2018Q2

REPORT INFORMATION
  Report Type: Spontaneous
  Country: US (occurrence: US)
  Receive Date: 20180423
  Receipt Date: 20180423
  Transmission Date: 20180711
  Serious: No
  Sender: FDA-Public Use
  Company Number: US-SUNOVION-2018SUN001378

PATIENT
  Sex: Female

DRUGS (1)
  1. LATUDA [Suspect]
     Active Substance: LURASIDONE HYDROCHLORIDE
     Dosage: UNKNOWN
     Route: 048
     Dates: start: 201803

REACTIONS (5)
  - Heart rate increased [Unknown]
  - Chest discomfort [Unknown]
  - Anxiety [Unknown]
  - Heart rate irregular [Unknown]
  - Dyspnoea [Unknown]
